FAERS Safety Report 26127756 (Version 1)
Quarter: 2025Q4

REPORT INFORMATION
  Report Type: Spontaneous
  Country: BR (occurrence: BR)
  Receive Date: 20251206
  Receipt Date: 20251206
  Transmission Date: 20260118
  Serious: Yes (Death, Other)
  Sender: ACCORD
  Company Number: BR-Accord-516529

PATIENT
  Age: 59 Year
  Sex: Male

DRUGS (8)
  1. FLUOROURACIL [Suspect]
     Active Substance: FLUOROURACIL
     Indication: Oesophageal adenocarcinoma
  2. OXALIPLATIN [Suspect]
     Active Substance: OXALIPLATIN
     Indication: Oesophageal adenocarcinoma
  3. LEUCOVORIN [Suspect]
     Active Substance: LEUCOVORIN\LEUCOVORIN CALCIUM
     Indication: Oesophageal adenocarcinoma
  4. NIVOLUMAB [Suspect]
     Active Substance: NIVOLUMAB
     Indication: Oesophageal adenocarcinoma
  5. FLUOROURACIL [Suspect]
     Active Substance: FLUOROURACIL
     Indication: Intestinal metastasis
  6. OXALIPLATIN [Suspect]
     Active Substance: OXALIPLATIN
     Indication: Intestinal metastasis
  7. LEUCOVORIN [Suspect]
     Active Substance: LEUCOVORIN\LEUCOVORIN CALCIUM
     Indication: Intestinal metastasis
  8. NIVOLUMAB [Suspect]
     Active Substance: NIVOLUMAB
     Indication: Intestinal metastasis

REACTIONS (3)
  - Pulmonary embolism [Fatal]
  - Seizure [Fatal]
  - Pneumonia aspiration [Fatal]
